FAERS Safety Report 6252002-0 (Version None)
Quarter: 2009Q2

REPORT INFORMATION
  Report Type: 
  Country: None (occurrence: None)
  Receive Date: 20090630
  Receipt Date: 20040127
  Transmission Date: 20091009
  Serious: Yes (Hospitalization)
  Sender: FDA-Public Use
  Company Number: US-ROCHE-638392

PATIENT
  Sex: Male

DRUGS (11)
  1. ENFUVIRTIDE [Suspect]
     Route: 065
     Dates: start: 20040409, end: 20061205
  2. VIREAD [Concomitant]
     Dates: start: 20030807, end: 20080814
  3. KALETRA [Concomitant]
     Route: 048
     Dates: start: 20040405, end: 20061205
  4. KALETRA [Concomitant]
     Route: 048
     Dates: start: 20061205, end: 20071116
  5. INVIRASE [Concomitant]
     Dates: start: 20061205, end: 20080814
  6. ISENTRESS [Concomitant]
     Dates: start: 20071116, end: 20080814
  7. NORVIR [Concomitant]
     Dates: start: 20071116, end: 20080814
  8. ZITHROMAX [Concomitant]
     Dates: start: 20050121, end: 20050126
  9. LEVAQUIN [Concomitant]
     Dates: start: 20050318, end: 20050331
  10. MOXIFLOXACIN HCL [Concomitant]
     Dates: start: 20061205
  11. CIPROK [Concomitant]
     Dates: start: 20080506, end: 20080516

REACTIONS (1)
  - BRONCHITIS [None]
